FAERS Safety Report 9860347 (Version 1)
Quarter: 2014Q1

REPORT INFORMATION
  Report Type: Spontaneous
  Country: US (occurrence: US)
  Receive Date: 20140202
  Receipt Date: 20140202
  Transmission Date: 20141002
  Serious: Yes (Death)
  Sender: FDA-Public Use
  Company Number: CHPA2014US001569

PATIENT
  Age: 46 Year
  Sex: Male

DRUGS (8)
  1. DIPHENHYDRAMINE [Suspect]
     Route: 065
  2. FENTANYL [Suspect]
     Route: 062
  3. OXYCODONE [Suspect]
     Route: 065
  4. METHADONE [Suspect]
     Route: 065
  5. MUSCLE RELAXANTS [Suspect]
     Route: 065
  6. AMPHETAMINE [Suspect]
     Route: 065
  7. FLUOXETINE [Suspect]
     Route: 065
  8. ALPRAZOLAM [Suspect]
     Route: 065

REACTIONS (1)
  - Intentional drug misuse [Fatal]
